FAERS Safety Report 21381446 (Version 1)
Quarter: 2022Q3

REPORT INFORMATION
  Report Type: Spontaneous
  Country: US (occurrence: US)
  Receive Date: 20220927
  Receipt Date: 20220927
  Transmission Date: 20221027
  Serious: No
  Sender: FDA-Public Use
  Company Number: US-BRISTOL-MYERS SQUIBB COMPANY-2022-112418

PATIENT
  Sex: Male

DRUGS (2)
  1. OPDIVO [Suspect]
     Active Substance: NIVOLUMAB
     Indication: Bladder cancer
     Dosage: DOSE : 480MG/4 WEEKS;     FREQ : 480MG/4 WEEKS
     Route: 065
     Dates: start: 202109
  2. PREDNISONE [Concomitant]
     Active Substance: PREDNISONE
     Indication: Product used for unknown indication
     Route: 065

REACTIONS (2)
  - Rash [Unknown]
  - Off label use [Unknown]
